FAERS Safety Report 23032442 (Version 4)
Quarter: 2023Q4

REPORT INFORMATION
  Report Type: Spontaneous
  Country: JP (occurrence: JP)
  Receive Date: 20231005
  Receipt Date: 20231106
  Transmission Date: 20240110
  Serious: Yes (Death, Hospitalization, Other)
  Sender: FDA-Public Use
  Company Number: JP-PFIZER INC-PV202300160866

PATIENT
  Age: 74 Year
  Sex: Female
  Weight: 56 kg

DRUGS (12)
  1. SULFASALAZINE [Suspect]
     Active Substance: SULFASALAZINE
     Indication: Colitis ulcerative
     Dosage: 1000 MG, 2X/DAY
     Route: 048
     Dates: start: 20230921, end: 20230925
  2. PRAVASTATIN SODIUM [Concomitant]
     Active Substance: PRAVASTATIN SODIUM
     Dosage: 10 MG, 1X/DAY AFTER  BREAKFAST
  3. AMIODARONE HYDROCHLORIDE [Concomitant]
     Active Substance: AMIODARONE HYDROCHLORIDE
     Dosage: 100 MG, 1X/DAY AFTER BREAKFAST
  4. LEVOTHYROXINE SODIUM [Concomitant]
     Active Substance: LEVOTHYROXINE SODIUM
     Dosage: 12.5 NG, 1X/DAY AFTER BREAKFAST
  5. EVOCALCET [Concomitant]
     Active Substance: EVOCALCET
     Dosage: 2 MG, 1X/DAY AFTER DINNER
  6. BETAHISTINE MESILATE [Concomitant]
     Active Substance: BETAHISTINE MESILATE
     Dosage: 6 MG, 3X/DAY AFTER EVERY MEAL
  7. TAMOXIFEN [Concomitant]
     Active Substance: TAMOXIFEN
     Dosage: 20 MG, 1X/DAY AFTER BREAKFAST
  8. POTASSIUM ASPARTATE [Concomitant]
     Active Substance: POTASSIUM ASPARTATE
     Dosage: 600 MG, 3X/DAY AFTER EVERY MEAL
  9. BISOPROLOL [Concomitant]
     Active Substance: BISOPROLOL\BISOPROLOL FUMARATE
     Dosage: 1 DF, 1X/DAY NON-DIALYSIS DAYS (MONDAY, WEDNESDAY, FRIDAY, SUNDAY)
     Route: 062
  10. FLUTICASONE PROPIONATE\FORMOTEROL FUMARATE [Concomitant]
     Active Substance: FLUTICASONE PROPIONATE\FORMOTEROL FUMARATE
     Dosage: 2 DF, 1X/DAY
     Route: 055
  11. PIRENOXINE [Concomitant]
     Active Substance: PIRENOXINE
     Dosage: UNK, 4X/DAY IN RIGHT EYE
     Route: 047
  12. BRIMONIDINE TARTRATE\BRINZOLAMIDE [Concomitant]
     Active Substance: BRIMONIDINE TARTRATE\BRINZOLAMIDE
     Dosage: UNK, 2X/DAY IN BOTH EYES
     Route: 047

REACTIONS (10)
  - Gastrointestinal inflammation [Fatal]
  - Gastrointestinal perforation [Fatal]
  - Enterocolitis [Fatal]
  - Renal failure [Fatal]
  - Acidosis [Fatal]
  - Blood pressure decreased [Not Recovered/Not Resolved]
  - Altered state of consciousness [Unknown]
  - Respiratory disorder [Unknown]
  - Cardiac arrest [Unknown]
  - Off label use [Unknown]

NARRATIVE: CASE EVENT DATE: 20230921
